FAERS Safety Report 9745488 (Version 1)
Quarter: 2013Q4

REPORT INFORMATION
  Report Type: Spontaneous
  Country: GB (occurrence: GB)
  Receive Date: 20131211
  Receipt Date: 20131211
  Transmission Date: 20140711
  Serious: Yes (Other)
  Sender: FDA-Public Use
  Company Number: GB-JNJFOC-20131203917

PATIENT
  Age: 50 Year
  Sex: Female
  Weight: 98 kg

DRUGS (1)
  1. HALDOL [Suspect]
     Indication: BIPOLAR DISORDER
     Route: 030
     Dates: start: 200909

REACTIONS (10)
  - Cognitive disorder [Not Recovered/Not Resolved]
  - Periarthritis [Not Recovered/Not Resolved]
  - Musculoskeletal stiffness [Not Recovered/Not Resolved]
  - Hepatic enzyme increased [Unknown]
  - Fatigue [Not Recovered/Not Resolved]
  - Inflammation [Not Recovered/Not Resolved]
  - Mental impairment [Not Recovered/Not Resolved]
  - Lethargy [Not Recovered/Not Resolved]
  - Asthenia [Not Recovered/Not Resolved]
  - Amnesia [Not Recovered/Not Resolved]
